FAERS Safety Report 6890538-X (Version None)
Quarter: 2010Q3

REPORT INFORMATION
  Report Type: 
  Country: None (occurrence: None)
  Receive Date: 20100731
  Receipt Date: 20081124
  Transmission Date: 20110219
  Serious: No
  Sender: FDA-Public Use
  Company Number: US-PFIZER INC-2008079894

PATIENT
  Sex: Male

DRUGS (2)
  1. LIPITOR [Suspect]
     Indication: LIPIDS INCREASED
  2. NIZORAL [Interacting]
     Indication: ANTIFUNGAL TREATMENT
     Route: 061

REACTIONS (2)
  - DRUG INTERACTION [None]
  - MYALGIA [None]
